FAERS Safety Report 5527561-3 (Version None)
Quarter: 2007Q4

REPORT INFORMATION
  Report Type: 
  Country: None (occurrence: None)
  Receive Date: 20071128
  Receipt Date: 20071117
  Transmission Date: 20080405
  Serious: Yes (Hospitalization, Other)
  Sender: FDA-Public Use
  Company Number: CA-ELI_LILLY_AND_COMPANY-CA200711004734

PATIENT
  Age: 70 Year
  Sex: Female

DRUGS (5)
  1. FORTEO [Suspect]
     Indication: OSTEOPOROSIS
     Dosage: 20 UG, DAILY (1/D)
     Route: 058
     Dates: start: 20070803
  2. RAMIPRIL [Concomitant]
  3. PENTOXIFYLLINUM [Concomitant]
  4. DONEPEZIL HCL [Concomitant]
  5. RISEDRONATE SODIUM [Concomitant]

REACTIONS (2)
  - FALL [None]
  - HIP FRACTURE [None]
